FAERS Safety Report 24466645 (Version 1)
Quarter: 2024Q4

REPORT INFORMATION
  Report Type: Report from Study
  Country: US (occurrence: US)
  Receive Date: 20241018
  Receipt Date: 20241018
  Transmission Date: 20250115
  Serious: No
  Sender: ROCHE
  Company Number: US-ROCHE-3548691

PATIENT
  Sex: Female

DRUGS (20)
  1. XOLAIR [Suspect]
     Active Substance: OMALIZUMAB
     Indication: Product used for unknown indication
     Route: 065
  2. GABAPENTIN [Concomitant]
     Active Substance: GABAPENTIN
  3. FAMOTIDINE [Concomitant]
     Active Substance: FAMOTIDINE
  4. HYDROXYZINE [Concomitant]
     Active Substance: HYDROXYZINE HYDROCHLORIDE
  5. ZYRTEC [Concomitant]
     Active Substance: CETIRIZINE HYDROCHLORIDE
  6. METFORMIN [Concomitant]
     Active Substance: METFORMIN HYDROCHLORIDE
  7. BENADRYL [Concomitant]
     Active Substance: DIPHENHYDRAMINE HYDROCHLORIDE
  8. SELENIUM [Concomitant]
     Active Substance: SELENIUM
     Dosage: 200MCG
  9. MAGNESIUM [Concomitant]
     Active Substance: MAGNESIUM
  10. INOSITOL [Concomitant]
     Active Substance: INOSITOL
  11. TYLENOL [Concomitant]
     Active Substance: ACETAMINOPHEN
  12. MELOXICAM [Concomitant]
     Active Substance: MELOXICAM
  13. NIACIN [Concomitant]
     Active Substance: NIACIN
  14. SERTRALINE [Concomitant]
     Active Substance: SERTRALINE HYDROCHLORIDE
     Dosage: 20MG/ML
  15. VITAMIN C [Concomitant]
     Active Substance: ASCORBIC ACID
  16. OMEGA-3 ACIDS [Concomitant]
     Active Substance: OMEGA-3 FATTY ACIDS
  17. HERBALS\TURMERIC [Concomitant]
     Active Substance: HERBALS\TURMERIC
  18. RIZATRIPTAN [Concomitant]
     Active Substance: RIZATRIPTAN
  19. ZOFRAN [Concomitant]
     Active Substance: ONDANSETRON HYDROCHLORIDE
  20. EMGALITY [Concomitant]
     Active Substance: GALCANEZUMAB-GNLM

REACTIONS (2)
  - Postural orthostatic tachycardia syndrome [Unknown]
  - Mast cell activation syndrome [Unknown]
